FAERS Safety Report 9678047 (Version 1)
Quarter: 2013Q4

REPORT INFORMATION
  Report Type: Spontaneous
  Country: US (occurrence: None)
  Receive Date: 20131107
  Receipt Date: 20131107
  Transmission Date: 20140711
  Serious: Yes (Hospitalization)
  Sender: FDA-Public Use
  Company Number: None

PATIENT
  Sex: Female

DRUGS (1)
  1. TECFIDERA [Suspect]
     Dosage: TECFIDERA 240MG TWICE DAILY ORAL
     Route: 048
     Dates: start: 20131024, end: 20131101

REACTIONS (2)
  - Nausea [None]
  - Vomiting [None]
